FAERS Safety Report 9754629 (Version 1)
Quarter: 2013Q4

REPORT INFORMATION
  Report Type: Spontaneous
  Country: ES (occurrence: ES)
  Receive Date: 20131213
  Receipt Date: 20131213
  Transmission Date: 20140711
  Serious: Yes (Other)
  Sender: FDA-Public Use
  Company Number: ES-PFIZER INC-2013356139

PATIENT
  Age: 71 Year
  Sex: 0

DRUGS (1)
  1. LYRICA [Suspect]
     Dosage: 150 MG, 2X/DAY
     Route: 048
     Dates: start: 20130522, end: 20130529

REACTIONS (5)
  - Hypertension [Recovered/Resolved]
  - Face oedema [Recovered/Resolved]
  - Vision blurred [Recovered/Resolved]
  - Dizziness [Recovered/Resolved]
  - Eyelid oedema [Recovered/Resolved]
